FAERS Safety Report 23720866 (Version 4)
Quarter: 2024Q2

REPORT INFORMATION
  Report Type: Spontaneous
  Country: CA (occurrence: CA)
  Receive Date: 20240409
  Receipt Date: 20240523
  Transmission Date: 20240716
  Serious: Yes (Hospitalization)
  Sender: FDA-Public Use
  Company Number: CA-CELLTRION INC.-2024CA002394

PATIENT

DRUGS (8)
  1. INFLECTRA [Suspect]
     Active Substance: INFLIXIMAB-DYYB
     Indication: Colitis ulcerative
     Dosage: 300 MG  0, 2, 6, THEN EVERY 8 WEEKS
     Route: 042
     Dates: start: 20240111
  2. INFLECTRA [Suspect]
     Active Substance: INFLIXIMAB-DYYB
     Dosage: 300 MG  0, 2, 6, THEN EVERY 8 WEEKS
     Route: 042
     Dates: start: 20240124
  3. INFLECTRA [Suspect]
     Active Substance: INFLIXIMAB-DYYB
     Dosage: 300 MG  0, 2, 6, THEN EVERY 8 WEEKS
     Route: 042
     Dates: start: 20240221
  4. INFLECTRA [Suspect]
     Active Substance: INFLIXIMAB-DYYB
     Dosage: 10 MG/KG, EVERY 4 WEEKS
     Route: 042
     Dates: start: 20240315
  5. INFLECTRA [Suspect]
     Active Substance: INFLIXIMAB-DYYB
     Dosage: 500 MG AFTER 2 WK 3 DAYS (SUPPOSED TO RECEIVE 1 TIME DOSE AT 2 WK FROM PREVIOUS THEN RESUME Q4W)
     Route: 042
     Dates: start: 20240401
  6. INFLECTRA [Suspect]
     Active Substance: INFLIXIMAB-DYYB
     Dosage: 500 MG, EVERY 4 WEEKS
     Route: 042
     Dates: start: 20240417
  7. PREDNISONE [Concomitant]
     Active Substance: PREDNISONE
     Dosage: UNK
  8. PREDNISONE [Concomitant]
     Active Substance: PREDNISONE
     Dosage: 40 MG (INCREASED TO 40 MG ON A TAPERING SCHEDULE)

REACTIONS (14)
  - Condition aggravated [Recovering/Resolving]
  - Drug ineffective [Unknown]
  - Therapeutic product effect incomplete [Unknown]
  - Drug level decreased [Unknown]
  - Laboratory test abnormal [Unknown]
  - Secretion discharge [Unknown]
  - Lethargy [Unknown]
  - Night sweats [Unknown]
  - Hypoalbuminaemia [Unknown]
  - Depression [Unknown]
  - Nausea [Not Recovered/Not Resolved]
  - Alopecia [Unknown]
  - Off label use [Unknown]
  - Inappropriate schedule of product administration [Unknown]

NARRATIVE: CASE EVENT DATE: 20240301
